FAERS Safety Report 5028490-4 (Version None)
Quarter: 2006Q2

REPORT INFORMATION
  Report Type: 
  Country: None (occurrence: None)
  Receive Date: 20060617
  Receipt Date: 20060523
  Transmission Date: 20061013
  Serious: Yes (Hospitalization)
  Sender: FDA-Public Use
  Company Number: DE-GLAXOSMITHKLINE-D0049827A

PATIENT
  Age: 15 Year
  Sex: Female

DRUGS (3)
  1. VIANI [Suspect]
     Dosage: 2PUFF PER DAY
     Route: 055
  2. SINGULAIR [Concomitant]
     Dosage: 10MG SINGLE DOSE
     Route: 048
  3. UNKNOWN BRONCHIAL INHALER [Concomitant]
     Route: 065

REACTIONS (2)
  - MYOCLONUS [None]
  - SOMATISATION DISORDER [None]
